FAERS Safety Report 6085002-4 (Version None)
Quarter: 2009Q1

REPORT INFORMATION
  Report Type: 
  Country: None (occurrence: None)
  Receive Date: 20090218
  Receipt Date: 20090212
  Transmission Date: 20090719
  Serious: Yes (Death)
  Sender: FDA-Public Use
  Company Number: 20085773

PATIENT
  Age: 49 Year
  Sex: Male

DRUGS (3)
  1. LIORESAL [Suspect]
     Indication: MUSCLE SPASTICITY
     Dosage: MCG, DAILY, INTRATHECAL
     Route: 039
  2. HYDROMORPHONE HCL [Concomitant]
  3. BUPIVACAINE [Concomitant]

REACTIONS (1)
  - DEATH [None]
